FAERS Safety Report 9349924 (Version 1)
Quarter: 2013Q2

REPORT INFORMATION
  Report Type: Spontaneous
  Country: FR (occurrence: FR)
  Receive Date: 20130614
  Receipt Date: 20130614
  Transmission Date: 20140414
  Serious: Yes (Death)
  Sender: FDA-Public Use
  Company Number: PHHY2013FR060690

PATIENT
  Age: 35 Year
  Sex: Female

DRUGS (7)
  1. IRINOTECAN EBEWE [Suspect]
     Indication: RECTOSIGMOID CANCER METASTATIC
     Route: 042
     Dates: start: 20120531, end: 20121205
  2. FLUOROURACIL EBEWE [Suspect]
     Indication: RECTOSIGMOID CANCER METASTATIC
     Route: 042
     Dates: start: 20120531
  3. AVASTIN [Suspect]
     Indication: RECTOSIGMOID CANCER METASTATIC
     Route: 042
     Dates: start: 20120531
  4. CERAZETTE [Suspect]
     Indication: CONTRACEPTION
     Route: 048
     Dates: start: 20121120, end: 20130107
  5. INNOHEP [Concomitant]
     Indication: THROMBOSIS
     Dosage: 0.7 ML, UNK
  6. INNOHEP [Concomitant]
     Dosage: 0.6 ML, UNK
  7. INNOHEP [Concomitant]
     Dosage: 0.7 ML, UNK

REACTIONS (3)
  - Pulmonary embolism [Fatal]
  - Chest pain [Fatal]
  - Hypopnoea [Fatal]
